FAERS Safety Report 24911118 (Version 3)
Quarter: 2025Q2

REPORT INFORMATION
  Report Type: Report from Study
  Country: CA (occurrence: CA)
  Receive Date: 20250131
  Receipt Date: 20250402
  Transmission Date: 20250717
  Serious: Yes (Hospitalization, Other)
  Sender: SANDOZ
  Company Number: CA-SANDOZ-SDZ2024CA100671

PATIENT
  Sex: Male

DRUGS (2)
  1. WYOST [Suspect]
     Active Substance: DENOSUMAB-BBDZ
     Indication: Metastases to bone
     Dosage: 120 MG, Q4W (120 MG;MONTHLY (Q 4 WEEKS))
     Route: 058
     Dates: start: 20241108
  2. WYOST [Suspect]
     Active Substance: DENOSUMAB-BBDZ
     Indication: Neoplasm

REACTIONS (3)
  - Hepatic failure [Unknown]
  - Neoplasm malignant [Not Recovered/Not Resolved]
  - Abdominal pain upper [Unknown]

NARRATIVE: CASE EVENT DATE: 20240101
